FAERS Safety Report 6210281-X (Version None)
Quarter: 2009Q2

REPORT INFORMATION
  Report Type: 
  Country: None (occurrence: None)
  Receive Date: 20090601
  Receipt Date: 20090520
  Transmission Date: 20091009
  Serious: Yes (Life-Threatening)
  Sender: FDA-Public Use
  Company Number: GB-PFIZER INC-2009216197

PATIENT
  Age: 26 Year

DRUGS (4)
  1. CHAMPIX [Suspect]
     Indication: SMOKING CESSATION THERAPY
     Dosage: 500 UG, UNK
     Route: 048
     Dates: start: 20090430
  2. ZYBAN [Suspect]
     Indication: SMOKING CESSATION THERAPY
     Dosage: 150 MG, UNK
     Route: 048
     Dates: start: 20090306, end: 20090430
  3. TERBUTALINE [Concomitant]
     Indication: ASTHMA
     Dosage: 500 UG, UNK
     Route: 055
     Dates: start: 20070301
  4. YASMIN [Concomitant]
     Indication: CONTRACEPTION
     Dosage: UNK
     Route: 048
     Dates: start: 20080704

REACTIONS (4)
  - CELLULITIS [None]
  - FEELING HOT [None]
  - LIP SWELLING [None]
  - SWELLING FACE [None]
